FAERS Safety Report 23679260 (Version 2)
Quarter: 2024Q2

REPORT INFORMATION
  Report Type: Spontaneous
  Country: US (occurrence: US)
  Receive Date: 20240327
  Receipt Date: 20240401
  Transmission Date: 20240716
  Serious: No
  Sender: FDA-Public Use
  Company Number: US-JNJFOC-20240344129

PATIENT
  Age: 24 Year
  Sex: Female

DRUGS (3)
  1. TYLENOL [Suspect]
     Active Substance: ACETAMINOPHEN
     Indication: Abdominal pain upper
     Route: 065
     Dates: start: 2024
  2. TYVASO [Concomitant]
     Active Substance: TREPROSTINIL
     Indication: Pulmonary arterial hypertension
     Dosage: 42 UG (7 BREATHS), FOUR TIMES A DAY (QID) VIA INHALATION (IH) ROUTE.
     Route: 055
  3. TYVASO [Concomitant]
     Active Substance: TREPROSTINIL
     Dosage: IH TYVASO (TREPROSTINIL SODIUM, CONCENTRATION OF 0.6 MG/ML)
     Route: 055
     Dates: start: 202401

REACTIONS (1)
  - Drug ineffective [Unknown]

NARRATIVE: CASE EVENT DATE: 20240101
